FAERS Safety Report 7753516-4 (Version None)
Quarter: 2011Q3

REPORT INFORMATION
  Report Type: 
  Country: None (occurrence: None)
  Receive Date: 20110915
  Receipt Date: 20110907
  Transmission Date: 20111222
  Serious: Yes (Other)
  Sender: FDA-Public Use
  Company Number: JP-CEPHALON-2011004835

PATIENT
  Age: 62 Year
  Sex: Male

DRUGS (8)
  1. TREANDA [Suspect]
     Indication: EXTRANODAL MARGINAL ZONE B-CELL LYMPHOMA (MALT TYPE)
     Route: 042
     Dates: start: 20110826, end: 20110827
  2. LANSOPRAZOLE [Concomitant]
     Dates: end: 20110903
  3. RITUXIMAB [Suspect]
     Indication: EXTRANODAL MARGINAL ZONE B-CELL LYMPHOMA (MALT TYPE)
     Route: 042
     Dates: start: 20110825, end: 20110825
  4. SULFAMETHOXAZOLE AND TRIMETHOPRIM [Concomitant]
     Dates: end: 20110903
  5. ACYCLOVIR [Concomitant]
     Dates: end: 20110904
  6. MAGNESIUM OXIDE [Concomitant]
     Dates: end: 20110904
  7. ALLOPURINOL [Concomitant]
     Dates: end: 20110904
  8. NORADRENALIN [Concomitant]

REACTIONS (2)
  - ERYTHEMA MULTIFORME [None]
  - CARDIOMYOPATHY [None]
